FAERS Safety Report 5592500-6 (Version None)
Quarter: 2008Q1

REPORT INFORMATION
  Report Type: 
  Country: None (occurrence: None)
  Receive Date: 20080115
  Receipt Date: 20080107
  Transmission Date: 20080703
  Serious: Yes (Other)
  Sender: FDA-Public Use
  Company Number: US-PFIZER INC-2008001940

PATIENT
  Sex: Male

DRUGS (2)
  1. CHANTIX [Suspect]
  2. ALCOHOL [Suspect]

REACTIONS (4)
  - ABNORMAL DREAMS [None]
  - AGGRESSION [None]
  - HOMICIDE [None]
  - PHYSICAL ASSAULT [None]
